FAERS Safety Report 4854203-2 (Version None)
Quarter: 2005Q4

REPORT INFORMATION
  Report Type: 
  Country: None (occurrence: None)
  Receive Date: 20051213
  Receipt Date: 20051130
  Transmission Date: 20060501
  Serious: Yes (Hospitalization, Other)
  Sender: FDA-Public Use
  Company Number: 2005162506

PATIENT
  Sex: Male
  Weight: 108.8633 kg

DRUGS (3)
  1. VIAGRA [Suspect]
     Indication: ERECTILE DYSFUNCTION
     Dosage: ^10 UNITS^,
  2. DRUG USED IN DIABETES (DRUG USED IN DIABETES) [Concomitant]
  3. ALL OTHER THERAPEUTIC PRODUCTS (ALL OTHER THERAPEUTIC PRODUCTS) [Concomitant]

REACTIONS (6)
  - EJACULATION FAILURE [None]
  - HEADACHE [None]
  - MALAISE [None]
  - MYOCARDIAL INFARCTION [None]
  - PARAESTHESIA OF GENITAL MALE [None]
  - SENSATION OF HEAVINESS [None]
